FAERS Safety Report 16393658 (Version 1)
Quarter: 2019Q3

REPORT INFORMATION
  Report Type: Spontaneous
  Country: US (occurrence: US)
  Receive Date: 20190603
  Receipt Date: 20190603
  Transmission Date: 20191004
  Serious: Yes (Other)
  Sender: FDA-Public Use
  Company Number: None

PATIENT
  Sex: Female

DRUGS (15)
  1. SINGULAIR [Concomitant]
     Active Substance: MONTELUKAST SODIUM
  2. FUROSEMIDE. [Concomitant]
     Active Substance: FUROSEMIDE
  3. PROAIR HFA [Concomitant]
     Active Substance: ALBUTEROL SULFATE
  4. VITAMIN D [Concomitant]
     Active Substance: VITAMIN D NOS
  5. ACTIGALL [Concomitant]
     Active Substance: URSODIOL
     Indication: PULMONARY ARTERIAL HYPERTENSION
  6. DIGOXIN. [Concomitant]
     Active Substance: DIGOXIN
  7. LORAZEPAM. [Concomitant]
     Active Substance: LORAZEPAM
  8. LUMIGAN [Concomitant]
     Active Substance: BIMATOPROST
  9. ALPRAZOLAM. [Concomitant]
     Active Substance: ALPRAZOLAM
  10. SPIRONOLACT [Concomitant]
     Active Substance: SPIRONOLACTONE
  11. VALSARTAN. [Concomitant]
     Active Substance: VALSARTAN
  12. OPSUMIT [Concomitant]
     Active Substance: MACITENTAN
  13. RESTASIS [Concomitant]
     Active Substance: CYCLOSPORINE
  14. SILDENAFIL. [Suspect]
     Active Substance: SILDENAFIL
     Indication: PULMONARY ARTERIAL HYPERTENSION
     Route: 048
     Dates: start: 20140422
  15. METFORMIN [Concomitant]
     Active Substance: METFORMIN HYDROCHLORIDE

REACTIONS (1)
  - Primary biliary cholangitis [None]
